FAERS Safety Report 5127860-3 (Version None)
Quarter: 2006Q4

REPORT INFORMATION
  Report Type: 
  Country: None (occurrence: None)
  Receive Date: 20061010
  Receipt Date: 20060918
  Transmission Date: 20070319
  Serious: Yes (Hospitalization)
  Sender: FDA-Public Use
  Company Number: ENTC2006-0177

PATIENT
  Age: 78 Year
  Sex: Female

DRUGS (7)
  1. STALEVO 100 [Suspect]
     Indication: PARKINSON'S DISEASE
     Dosage: 100/25/200 X 3
     Route: 048
     Dates: start: 20060228, end: 20060629
  2. SPIRONOLACTONE [Concomitant]
  3. OROCAL D3 [Concomitant]
  4. ASPEGIC 1000 [Concomitant]
  5. DIDRONEL [Concomitant]
  6. DEROXAT [Concomitant]
  7. PRAZEPAM [Concomitant]

REACTIONS (2)
  - DIARRHOEA [None]
  - GASTROINTESTINAL CANDIDIASIS [None]
